FAERS Safety Report 23931910 (Version 1)
Quarter: 2024Q2

REPORT INFORMATION
  Report Type: Spontaneous
  Country: US (occurrence: US)
  Receive Date: 20240603
  Receipt Date: 20240603
  Transmission Date: 20240716
  Serious: No
  Sender: FDA-Public Use
  Company Number: US-HALEON-2178621

PATIENT
  Sex: Female

DRUGS (3)
  1. SENSODYNE SENSITIVITY AND GUM CLEAN AND FRESH [Suspect]
     Active Substance: STANNOUS FLUORIDE
     Indication: Gingivitis
  2. SENSODYNE SENSITIVITY AND GUM CLEAN AND FRESH [Suspect]
     Active Substance: STANNOUS FLUORIDE
     Indication: Hyperaesthesia teeth
  3. SENSODYNE SENSITIVITY AND GUM CLEAN AND FRESH [Suspect]
     Active Substance: STANNOUS FLUORIDE
     Indication: Dental disorder prophylaxis

REACTIONS (6)
  - Dry mouth [Unknown]
  - Oral mucosal exfoliation [Unknown]
  - Lip dry [Unknown]
  - Lip exfoliation [Unknown]
  - Oral pruritus [Unknown]
  - Oral discomfort [Unknown]
